FAERS Safety Report 9360361 (Version 1)
Quarter: 2013Q2

REPORT INFORMATION
  Report Type: Spontaneous
  Country: US (occurrence: US)
  Receive Date: 20130621
  Receipt Date: 20130621
  Transmission Date: 20140414
  Serious: Yes (Other)
  Sender: FDA-Public Use
  Company Number: US-US-EMD SERONO, INC.-7165226

PATIENT
  Age: 29 Year
  Sex: Male

DRUGS (3)
  1. REBIF [Suspect]
     Indication: RELAPSING-REMITTING MULTIPLE SCLEROSIS
     Route: 058
     Dates: start: 20120914
  2. LAMICTAL XR [Concomitant]
     Indication: CONVULSION
     Dosage: TO 300 MG AT BEDTIME
     Route: 048
     Dates: start: 201007
  3. VIMPAT [Concomitant]
     Indication: CONVULSION
     Dosage: TO 400 MG AT BEDTIME
     Dates: start: 201103

REACTIONS (1)
  - Convulsion [Recovered/Resolved]
